FAERS Safety Report 4720254-1 (Version None)
Quarter: 2005Q3

REPORT INFORMATION
  Report Type: 
  Country: None (occurrence: None)
  Receive Date: 20050721
  Receipt Date: 20050715
  Transmission Date: 20060218
  Serious: Yes (Hospitalization)
  Sender: FDA-Public Use
  Company Number: US-JNJFOC-20050402131

PATIENT
  Age: 80 Year
  Sex: Female

DRUGS (5)
  1. REMINYL [Suspect]
     Route: 048
  2. COUMADIN [Suspect]
     Indication: ANTICOAGULANT THERAPY
     Route: 048
  3. ATENOLOL [Concomitant]
     Indication: HYPERTENSION
     Route: 048
  4. PRILOSEC [Concomitant]
     Route: 065
  5. DIGOXIN [Concomitant]
     Indication: HEART RATE
     Route: 065

REACTIONS (4)
  - INTERNATIONAL NORMALISED RATIO INCREASED [None]
  - SICK SINUS SYNDROME [None]
  - SWELLING FACE [None]
  - TOOTH REPAIR [None]
